FAERS Safety Report 7099763-9 (Version None)
Quarter: 2010Q4

REPORT INFORMATION
  Report Type: 
  Country: None (occurrence: None)
  Receive Date: 20101112
  Receipt Date: 20101101
  Transmission Date: 20110411
  Serious: Yes (Hospitalization)
  Sender: FDA-Public Use
  Company Number: AT-MYLANLABS-2010S1020405

PATIENT
  Age: 15 Year
  Sex: Female

DRUGS (1)
  1. MINOCYCLINE HCL [Suspect]
     Indication: FOLLICULITIS
     Route: 065

REACTIONS (9)
  - C-REACTIVE PROTEIN INCREASED [None]
  - CYTOTOXIC OEDEMA [None]
  - HEADACHE [None]
  - LEUKOPENIA [None]
  - MENINGEAL DISORDER [None]
  - PYREXIA [None]
  - RED BLOOD CELL SEDIMENTATION RATE INCREASED [None]
  - VERTIGO [None]
  - VOMITING [None]
